FAERS Safety Report 8325566-0 (Version None)
Quarter: 2012Q2

REPORT INFORMATION
  Report Type: 
  Country: None (occurrence: None)
  Receive Date: 20120501
  Receipt Date: 20120419
  Transmission Date: 20120825
  Serious: Yes (Hospitalization, Other)
  Sender: FDA-Public Use
  Company Number: CA-JNJFOC-20120409404

PATIENT
  Sex: Female
  Weight: 53 kg

DRUGS (3)
  1. REMICADE [Suspect]
     Route: 042
     Dates: start: 20120419
  2. ALL OTHER THERAPEUTICS [Concomitant]
     Route: 065
  3. REMICADE [Suspect]
     Indication: CROHN'S DISEASE
     Route: 042
     Dates: start: 20120320

REACTIONS (11)
  - ASTHENIA [None]
  - HEADACHE [None]
  - DYSPNOEA [None]
  - CHEST DISCOMFORT [None]
  - INTESTINAL RESECTION [None]
  - INFUSION RELATED REACTION [None]
  - COLD SWEAT [None]
  - HYPOTENSION [None]
  - DRUG INEFFECTIVE [None]
  - HEART RATE INCREASED [None]
  - FLUSHING [None]
